FAERS Safety Report 8998355 (Version 3)
Quarter: 2013Q1

REPORT INFORMATION
  Report Type: Spontaneous
  Country: JP (occurrence: JP)
  Receive Date: 20130102
  Receipt Date: 20130305
  Transmission Date: 20140127
  Serious: Yes (Death)
  Sender: FDA-Public Use
  Company Number: JP-ASTRAZENECA-2012SE96144

PATIENT
  Age: 64 Year
  Sex: Male
  Weight: 58 kg

DRUGS (11)
  1. SEROQUEL [Suspect]
     Indication: SCHIZOPHRENIA
     Route: 048
     Dates: start: 20121126, end: 20121210
  2. SEROQUEL [Suspect]
     Indication: SCHIZOPHRENIA
     Route: 048
     Dates: start: 20121126, end: 20121210
  3. SEROQUEL [Suspect]
     Indication: SCHIZOPHRENIA
     Route: 048
     Dates: start: 20121211, end: 20121213
  4. SEROQUEL [Suspect]
     Indication: SCHIZOPHRENIA
     Route: 048
     Dates: start: 20121211, end: 20121213
  5. SEROQUEL [Suspect]
     Indication: SCHIZOPHRENIA
     Dosage: 25 MG, 25 MG, 50 MG AND 25 MG AT NIGHT
     Route: 048
     Dates: start: 20121214
  6. AKINETON [Concomitant]
     Indication: SCHIZOPHRENIA
     Dates: start: 20121204
  7. U-PAN [Concomitant]
     Indication: SCHIZOPHRENIA
     Dates: start: 20121126
  8. BENZALIN [Concomitant]
     Indication: SCHIZOPHRENIA
     Dates: start: 20121126
  9. MAGMITT [Concomitant]
     Dates: start: 20121126
  10. DIAZEPAM [Concomitant]
     Dates: start: 20121126
  11. SENNOSIDE [Concomitant]
     Dates: start: 20121126

REACTIONS (8)
  - Sudden death [Fatal]
  - Atrial fibrillation [Fatal]
  - Cardiac arrest [Fatal]
  - Gait disturbance [Fatal]
  - Contusion [Fatal]
  - Fall [Fatal]
  - Extrapyramidal disorder [Fatal]
  - Hallucination, auditory [Unknown]
